FAERS Safety Report 24404328 (Version 1)
Quarter: 2024Q4

REPORT INFORMATION
  Report Type: Spontaneous
  Country: US (occurrence: None)
  Receive Date: 20241004
  Receipt Date: 20241004
  Transmission Date: 20250115
  Serious: No
  Sender: Public
  Company Number: None

PATIENT
  Age: 73 Year
  Sex: Male

DRUGS (3)
  1. APIXABAN [Suspect]
     Active Substance: APIXABAN
     Indication: Atrial fibrillation
     Dosage: FREQUENCY : TWICE A DAY;?
     Route: 048
     Dates: start: 20240423
  2. DABIGATRAN [Suspect]
     Active Substance: DABIGATRAN
  3. PREDNISONE [Suspect]
     Active Substance: PREDNISONE

REACTIONS (6)
  - Haematuria [None]
  - Weight decreased [None]
  - Renal impairment [None]
  - Nephrolithiasis [None]
  - Drug interaction [None]
  - Haemorrhage [None]

NARRATIVE: CASE EVENT DATE: 20240429
